FAERS Safety Report 12699419 (Version 3)
Quarter: 2017Q3

REPORT INFORMATION
  Report Type: Spontaneous
  Country: FR (occurrence: FR)
  Receive Date: 20160830
  Receipt Date: 20170707
  Transmission Date: 20171127
  Serious: Yes (Life-Threatening, Hospitalization, Other)
  Sender: FDA-Public Use
  Company Number: FR-BAYER-2016-166189

PATIENT
  Age: 44 Year
  Sex: Female

DRUGS (1)
  1. MIRENA [Suspect]
     Active Substance: LEVONORGESTREL
     Indication: CONTRACEPTION
     Dosage: 20 MCG/24HR, CONT
     Route: 015
     Dates: start: 2013, end: 201608

REACTIONS (4)
  - Suicide attempt [Recovering/Resolving]
  - Suicide attempt [Recovering/Resolving]
  - Suicide attempt [Recovering/Resolving]
  - Crying [None]

NARRATIVE: CASE EVENT DATE: 20160824
